FAERS Safety Report 18382117 (Version 1)
Quarter: 2020Q4

REPORT INFORMATION
  Report Type: Spontaneous
  Country: US (occurrence: US)
  Receive Date: 20201014
  Receipt Date: 20201014
  Transmission Date: 20210114
  Serious: No
  Sender: FDA-Public Use
  Company Number: US-PFIZER INC-2020395506

PATIENT
  Age: 78 Year
  Sex: Male
  Weight: 70.31 kg

DRUGS (5)
  1. CARVEDILOL. [Suspect]
     Active Substance: CARVEDILOL
     Dosage: UNK
     Dates: start: 202006, end: 202009
  2. FUROSEMIDE. [Concomitant]
     Active Substance: FUROSEMIDE
     Indication: CARDIAC FAILURE CONGESTIVE
     Dosage: UNK
     Dates: start: 2020
  3. ENTRESTO [Suspect]
     Active Substance: SACUBITRIL\VALSARTAN
     Dosage: 24/25 TWICE DAILY OR A 48/51 TWICE A DAY,1 PILL CUT IN HALF, ONE IN THE MORNING AND ONE AT NIGHT
     Dates: start: 202006
  4. EPLERENONE. [Suspect]
     Active Substance: EPLERENONE
     Dosage: UNK, DAILY [IS HALF A TABLET DAILY]
  5. EPLERENONE. [Suspect]
     Active Substance: EPLERENONE
     Dosage: 25 MG, DAILY
     Dates: start: 202006

REACTIONS (2)
  - Dizziness [Unknown]
  - Off label use [Unknown]
